FAERS Safety Report 20232067 (Version 2)
Quarter: 2022Q2

REPORT INFORMATION
  Report Type: Spontaneous
  Country: AT (occurrence: AT)
  Receive Date: 20211227
  Receipt Date: 20220411
  Transmission Date: 20220721
  Serious: Yes (Hospitalization)
  Sender: FDA-Public Use
  Company Number: AT-NOVARTISPH-NVSC2021AT290790

PATIENT
  Age: 73 Year
  Sex: Female
  Weight: 53 kg

DRUGS (33)
  1. LETROZOLE [Suspect]
     Active Substance: LETROZOLE
     Indication: HER2 positive breast cancer
     Dosage: 2.5 MG, QD
     Route: 048
     Dates: start: 20161021, end: 20200629
  2. RIBOCICLIB [Suspect]
     Active Substance: RIBOCICLIB
     Indication: HER2 positive breast cancer
     Dosage: 600 MG (MOST RECENT DOSE PRIOR TO THE EVENT: 24/OCT/2020)
     Route: 048
     Dates: start: 20200716
  3. RIBOCICLIB [Suspect]
     Active Substance: RIBOCICLIB
     Dosage: 75 MG
     Route: 048
     Dates: start: 202012, end: 202110
  4. DOCETAXEL [Suspect]
     Active Substance: DOCETAXEL
     Indication: HER2 positive breast cancer
     Dosage: 75 MG/M2, TIW
     Route: 042
     Dates: start: 20160629, end: 20161013
  5. FULVESTRANT [Suspect]
     Active Substance: FULVESTRANT
     Indication: HER2 positive breast cancer
     Dosage: 500 MG, Q4W
     Route: 058
     Dates: start: 20200716
  6. PERTUZUMAB [Suspect]
     Active Substance: PERTUZUMAB
     Indication: HER2 positive breast cancer
     Dosage: 420 MG, Q3W (MOST RECENT DOSE PRIOR TO THE EVENT: 27/FEB/2020)
     Route: 042
     Dates: start: 20160629
  7. PERTUZUMAB [Suspect]
     Active Substance: PERTUZUMAB
     Dosage: 420 MG, Q3W
     Route: 042
     Dates: start: 20180719, end: 20200227
  8. PERTUZUMAB [Suspect]
     Active Substance: PERTUZUMAB
     Dosage: 420 MG, Q3W
     Route: 042
     Dates: start: 20200227, end: 20200520
  9. TRASTUZUMAB [Suspect]
     Active Substance: TRASTUZUMAB
     Indication: HER2 positive breast cancer
     Dosage: 354 MG, Q3W (MOST RECENT DOSE PRIOR TO THE EVENT: 27/FEB/2020)
     Route: 041
     Dates: start: 20160629
  10. TRASTUZUMAB [Suspect]
     Active Substance: TRASTUZUMAB
     Dosage: 372 MG, Q3W
     Route: 041
     Dates: start: 20180719, end: 20200227
  11. TRASTUZUMAB [Suspect]
     Active Substance: TRASTUZUMAB
     Dosage: 372 MG, Q3W
     Route: 041
     Dates: start: 20200227, end: 20200520
  12. DENOSUMAB [Suspect]
     Active Substance: DENOSUMAB
     Indication: HER2 positive breast cancer
     Dosage: 120 MG, Q4W
     Route: 058
     Dates: start: 20161121, end: 202101
  13. DENOSUMAB [Suspect]
     Active Substance: DENOSUMAB
     Dosage: 120 MG, Q4W
     Route: 058
     Dates: start: 20161121, end: 20210126
  14. DENOSUMAB [Suspect]
     Active Substance: DENOSUMAB
     Dosage: 120 MG, Q4W (MOST RECENT DOSE: 15/SEP/2021)
     Route: 058
     Dates: start: 20161121
  15. PALBOCICLIB [Suspect]
     Active Substance: PALBOCICLIB
     Indication: HER2 positive breast cancer
     Dosage: 100 MG, Q4W (OTHER D1-D21)
     Route: 048
     Dates: start: 202011, end: 202012
  16. PALBOCICLIB [Suspect]
     Active Substance: PALBOCICLIB
     Dosage: 75 MG, Q4W
     Route: 048
     Dates: start: 202012, end: 202110
  17. NEBIVOLOL HYDROCHLORIDE [Concomitant]
     Active Substance: NEBIVOLOL HYDROCHLORIDE
     Indication: Product used for unknown indication
     Dosage: UNK
     Route: 065
     Dates: start: 20170115
  18. METHYLPREDNISOLONE ACEPONATE [Concomitant]
     Active Substance: METHYLPREDNISOLONE ACEPONATE
     Indication: Palmar-plantar erythrodysaesthesia syndrome
     Dosage: UNK
     Route: 065
     Dates: start: 20201111
  19. ELO MEL [Concomitant]
     Indication: Product used for unknown indication
     Dosage: UNK
     Route: 065
     Dates: start: 20210908, end: 20210908
  20. PENICILLIN V [Concomitant]
     Active Substance: PENICILLIN V
     Indication: Osteonecrosis of jaw
     Dosage: UNK
     Route: 065
     Dates: start: 20210114
  21. BETAMETHASONE DIPROPIONATE [Concomitant]
     Active Substance: BETAMETHASONE DIPROPIONATE
     Indication: Rash
     Dosage: UNK
     Route: 065
     Dates: start: 20180621
  22. EUTHYROX [Concomitant]
     Active Substance: LEVOTHYROXINE SODIUM
     Indication: Product used for unknown indication
     Dosage: UNK
     Route: 065
     Dates: start: 20210223
  23. AMOXICILLIN\CLAVULANATE POTASSIUM [Concomitant]
     Active Substance: AMOXICILLIN\CLAVULANATE POTASSIUM
     Indication: Osteonecrosis of jaw
     Dosage: UNK
     Route: 065
     Dates: start: 20210915
  24. ASPIRIN [Concomitant]
     Active Substance: ASPIRIN
     Indication: Product used for unknown indication
     Dosage: UNK
     Route: 065
     Dates: start: 20170115
  25. AMPICILLIN [Concomitant]
     Active Substance: AMPICILLIN
     Indication: Osteonecrosis of jaw
     Dosage: UNK
     Route: 065
     Dates: start: 20210915, end: 20210915
  26. ENOXAPARIN SODIUM [Concomitant]
     Active Substance: ENOXAPARIN SODIUM
     Indication: Product used for unknown indication
     Dosage: UNK
     Route: 065
     Dates: start: 20210915, end: 20210915
  27. LISINOPRIL [Concomitant]
     Active Substance: LISINOPRIL
     Indication: Product used for unknown indication
     Dosage: UNK
     Route: 065
     Dates: start: 20170115
  28. BETAISODONA [Concomitant]
     Active Substance: POVIDONE-IODINE
     Indication: Paronychia
     Dosage: UNK
     Route: 065
     Dates: start: 20201111
  29. METAMIZOLE [Concomitant]
     Active Substance: METAMIZOLE
     Indication: Osteonecrosis of jaw
     Dosage: UNK
     Route: 065
     Dates: start: 20210915, end: 20210915
  30. MICRO-KALIUM [Concomitant]
     Indication: Product used for unknown indication
     Dosage: UNK
     Route: 065
  31. ATORVASTATIN [Concomitant]
     Active Substance: ATORVASTATIN
     Indication: Hypercholesterolaemia
     Dosage: 20 MG
     Route: 048
     Dates: start: 201701, end: 201701
  32. HYDROMORPHONE HYDROCHLORIDE [Concomitant]
     Active Substance: HYDROMORPHONE HYDROCHLORIDE
     Indication: Product used for unknown indication
     Dosage: UNK
     Route: 065
  33. PANTOPRAZOLE SODIUM [Concomitant]
     Active Substance: PANTOPRAZOLE SODIUM
     Indication: Product used for unknown indication
     Dosage: UNK
     Route: 065

REACTIONS (2)
  - Hypercalcaemia [Recovered/Resolved]
  - Pain [Recovering/Resolving]

NARRATIVE: CASE EVENT DATE: 20210915
